FAERS Safety Report 11158604 (Version 1)
Quarter: 2015Q2

REPORT INFORMATION
  Report Type: Report from Study
  Country: GB (occurrence: GB)
  Receive Date: 20150603
  Receipt Date: 20150603
  Transmission Date: 20150821
  Serious: Yes (Hospitalization)
  Sender: FDA-Public Use
  Company Number: GB-ABBVIE-15K-167-1398775-00

PATIENT
  Age: 58 Year
  Sex: Male

DRUGS (3)
  1. HUMIRA [Suspect]
     Active Substance: ADALIMUMAB
     Indication: PRODUCT USED FOR UNKNOWN INDICATION
     Route: 065
     Dates: start: 20150512
  2. MEZAVANT [Suspect]
     Active Substance: MESALAMINE
     Indication: DIVERTICULITIS
     Route: 065
     Dates: start: 201505, end: 201505
  3. MEZAVANT [Suspect]
     Active Substance: MESALAMINE
     Indication: MALAISE

REACTIONS (4)
  - Lip swelling [Unknown]
  - Diverticulitis [Unknown]
  - Dizziness [Unknown]
  - Nasopharyngitis [Unknown]

NARRATIVE: CASE EVENT DATE: 201505
